FAERS Safety Report 8956188 (Version 5)
Quarter: 2013Q2

REPORT INFORMATION
  Report Type: Spontaneous
  Country: US (occurrence: US)
  Receive Date: 20121210
  Receipt Date: 20130520
  Transmission Date: 20140414
  Serious: Yes (Death, Other)
  Sender: FDA-Public Use
  Company Number: US-ELI_LILLY_AND_COMPANY-US201211009161

PATIENT
  Age: 57 Year
  Sex: Female
  Weight: 56.69 kg

DRUGS (1)
  1. FORTEO [Suspect]
     Indication: FEMUR FRACTURE
     Dosage: UNK, QD
     Dates: start: 201211

REACTIONS (3)
  - Coronary artery insufficiency [Fatal]
  - Decubitus ulcer [Unknown]
  - Off label use [Unknown]
